FAERS Safety Report 25233167 (Version 1)
Quarter: 2025Q2

REPORT INFORMATION
  Report Type: Spontaneous
  Country: PR (occurrence: PR)
  Receive Date: 20250424
  Receipt Date: 20250424
  Transmission Date: 20250716
  Serious: Yes (Death, Other)
  Sender: BRISTOL-MYERS SQUIBB COMPANY
  Company Number: PR-BRISTOL-MYERS SQUIBB COMPANY-2025-057401

PATIENT
  Age: 75 Year
  Sex: Female
  Weight: 65.32 kg

DRUGS (2)
  1. POMALYST [Suspect]
     Active Substance: POMALIDOMIDE
     Indication: Plasma cell myeloma
     Dosage: DAILY FOR 21 DAYS WITH 7 DAYS REST
     Route: 048
     Dates: start: 20220708
  2. XGEVA [Concomitant]
     Active Substance: DENOSUMAB
     Indication: Plasma cell myeloma
     Dosage: EVERY 28 DAYS
     Route: 058
     Dates: start: 20221027

REACTIONS (1)
  - Death [Fatal]

NARRATIVE: CASE EVENT DATE: 20250416
